FAERS Safety Report 6301167-0 (Version None)
Quarter: 2009Q3

REPORT INFORMATION
  Report Type: 
  Country: None (occurrence: None)
  Receive Date: 20090807
  Receipt Date: 20070514
  Transmission Date: 20100115
  Serious: Yes (Other)
  Sender: FDA-Public Use
  Company Number: US-ASTRAZENECA-2006UW22855

PATIENT
  Age: 13901 Day
  Sex: Female
  Weight: 88.5 kg

DRUGS (11)
  1. SEROQUEL [Suspect]
     Indication: MENTAL DISORDER
     Dosage: 100-900 MG EVERY DAY
     Route: 048
     Dates: start: 19990309
  2. SEROQUEL [Suspect]
     Indication: SCHIZOPHRENIA
     Dosage: 100-900 MG EVERY DAY
     Route: 048
     Dates: start: 19990309
  3. SEROQUEL [Suspect]
     Route: 048
  4. SEROQUEL [Suspect]
     Route: 048
  5. ABILIFY [Concomitant]
  6. GEODON [Concomitant]
  7. HALDOL [Concomitant]
  8. RISPERDAL [Concomitant]
  9. ZYPREXA [Concomitant]
  10. ZOLOFT [Concomitant]
     Dates: start: 19970122
  11. TRAZODONE HCL [Concomitant]
     Indication: INSOMNIA
     Dosage: 100-200 MG EVERY NIGHT, AS AND WHEN REQUIRED
     Dates: start: 19970122

REACTIONS (4)
  - DIABETES MELLITUS [None]
  - GLUCOSE TOLERANCE IMPAIRED [None]
  - HYPOGLYCAEMIA [None]
  - INSULIN RESISTANCE [None]
